FAERS Safety Report 7120841-X (Version None)
Quarter: 2010Q4

REPORT INFORMATION
  Report Type: 
  Country: None (occurrence: None)
  Receive Date: 20101124
  Receipt Date: 20091125
  Transmission Date: 20110411
  Serious: No
  Sender: FDA-Public Use
  Company Number: US-PFIZER INC-2009303764

PATIENT
  Sex: Female

DRUGS (3)
  1. TIKOSYN [Suspect]
     Dosage: UNK
  2. VITAMIN D [Concomitant]
  3. FOSAMAX [Concomitant]

REACTIONS (1)
  - BLOOD TEST ABNORMAL [None]
